FAERS Safety Report 12645584 (Version 2)
Quarter: 2016Q3

REPORT INFORMATION
  Report Type: Spontaneous
  Country: DE (occurrence: DE)
  Receive Date: 20160811
  Receipt Date: 20160916
  Transmission Date: 20161109
  Serious: Yes (Life-Threatening, Hospitalization)
  Sender: FDA-Public Use
  Company Number: DE-JNJFOC-20160804118

PATIENT
  Sex: Female
  Weight: 53 kg

DRUGS (1)
  1. DARZALEX [Suspect]
     Active Substance: DARATUMUMAB
     Indication: PLASMA CELL MYELOMA
     Route: 042
     Dates: start: 20160802, end: 20160803

REACTIONS (2)
  - Tumour lysis syndrome [Recovering/Resolving]
  - White blood cell count decreased [Not Recovered/Not Resolved]
